FAERS Safety Report 10027705 (Version 1)
Quarter: 2014Q1

REPORT INFORMATION
  Report Type: Spontaneous
  Country: DK (occurrence: None)
  Receive Date: 20140318
  Receipt Date: 20140318
  Transmission Date: 20141002
  Serious: Yes (Other)
  Sender: FDA-Public Use
  Company Number: AUR-APL-2014-03060

PATIENT
  Age: 30 Year
  Sex: Female

DRUGS (1)
  1. LAMOTRIGINE (LAMOTRIGINE) [Suspect]
     Indication: PRODUCT USED FOR UNKNOWN INDICATION

REACTIONS (2)
  - Cutaneous lupus erythematosus [None]
  - Condition aggravated [None]
